FAERS Safety Report 11831023 (Version 1)
Quarter: 2015Q4

REPORT INFORMATION
  Report Type: Spontaneous
  Country: US (occurrence: US)
  Receive Date: 20151214
  Receipt Date: 20151214
  Transmission Date: 20160305
  Serious: Yes (Hospitalization)
  Sender: FDA-Public Use
  Company Number: US-BAYER-2015-486886

PATIENT
  Age: 69 Year
  Sex: Female
  Weight: 70.75 kg

DRUGS (12)
  1. MIRALAX [Suspect]
     Active Substance: POLYETHYLENE GLYCOL 3350
     Indication: CONSTIPATION
     Dosage: 1 DF, QD
     Route: 048
     Dates: start: 2014
  2. VITAMINS NOS [Concomitant]
     Active Substance: VITAMINS
  3. MECLIZINE [Concomitant]
     Active Substance: MECLIZINE\MECLIZINE HYDROCHLORIDE
  4. SYSTANE [MACROGOL,PROPYLENE GLYCOL] [Concomitant]
  5. LIPITOR [Concomitant]
     Active Substance: ATORVASTATIN CALCIUM
  6. NASONEX [Concomitant]
     Active Substance: MOMETASONE FUROATE
  7. NEXIUM [Concomitant]
     Active Substance: ESOMEPRAZOLE MAGNESIUM
  8. TEMAZEPAM. [Concomitant]
     Active Substance: TEMAZEPAM
  9. CARVEDILOL. [Concomitant]
     Active Substance: CARVEDILOL
  10. RANEXA [Concomitant]
     Active Substance: RANOLAZINE
  11. MOBIC [Concomitant]
     Active Substance: MELOXICAM
  12. DESLORATADINE. [Concomitant]
     Active Substance: DESLORATADINE

REACTIONS (4)
  - Overdose [None]
  - Product use issue [None]
  - Diarrhoea [None]
  - Diarrhoea [Not Recovered/Not Resolved]

NARRATIVE: CASE EVENT DATE: 20151208
